FAERS Safety Report 8416327-2 (Version None)
Quarter: 2012Q2

REPORT INFORMATION
  Report Type: 
  Country: None (occurrence: None)
  Receive Date: 20120323
  Receipt Date: 20111111
  Transmission Date: 20120825
  Serious: Yes (Hospitalization)
  Sender: FDA-Public Use
  Company Number: 163-21880-11080908

PATIENT
  Age: 60 Year
  Sex: Male

DRUGS (9)
  1. VELCADE [Concomitant]
  2. KLOR-CON [Concomitant]
  3. SKELAXIN [Concomitant]
  4. REVLIMID [Suspect]
     Indication: MULTIPLE MYELOMA
     Dosage: 25 MG, 1 IN 1 D, PO ; 10 MG, QD ON DAYS 1-21, PO
     Route: 048
     Dates: start: 20100601, end: 20110101
  5. REVLIMID [Suspect]
     Indication: MULTIPLE MYELOMA
     Dosage: 25 MG, 1 IN 1 D, PO ; 10 MG, QD ON DAYS 1-21, PO
     Route: 048
     Dates: start: 20110101, end: 20110701
  6. LASIX [Concomitant]
  7. ZOFRAN [Concomitant]
  8. BACTROBAN [Concomitant]
  9. NORCO [Concomitant]

REACTIONS (1)
  - MULTIPLE MYELOMA [None]
